FAERS Safety Report 6265114-2 (Version None)
Quarter: 2009Q3

REPORT INFORMATION
  Report Type: 
  Country: None (occurrence: None)
  Receive Date: 20090713
  Receipt Date: 20090706
  Transmission Date: 20100115
  Serious: Yes (Hospitalization, Disabling)
  Sender: FDA-Public Use
  Company Number: BR-ASTRAZENECA-2009UW18778

PATIENT
  Age: 80 Year
  Sex: Female

DRUGS (8)
  1. ATACAND [Suspect]
     Route: 048
     Dates: start: 20050101, end: 20090601
  2. SELOZOK [Suspect]
     Route: 048
     Dates: start: 20050101
  3. SUSTRATE [Concomitant]
     Route: 048
  4. SYNTHROID [Concomitant]
     Dosage: 175 MCG
     Route: 048
  5. PANTOPRAZOLE SODIUM [Concomitant]
     Route: 048
  6. SPIRONOLACTONE [Concomitant]
     Route: 048
  7. DICLOPIDIN [Concomitant]
     Route: 048
  8. ZYPREXA [Concomitant]
     Route: 048

REACTIONS (5)
  - ASTHMA [None]
  - CEREBROVASCULAR ACCIDENT [None]
  - HYPERTENSION [None]
  - PNEUMONIA [None]
  - WEIGHT INCREASED [None]
